FAERS Safety Report 8151419-7 (Version None)
Quarter: 2012Q1

REPORT INFORMATION
  Report Type: 
  Country: None (occurrence: None)
  Receive Date: 20120220
  Receipt Date: 20110520
  Transmission Date: 20120608
  Serious: Yes (Death, Other)
  Sender: FDA-Public Use
  Company Number: CH-ROCHE-1034040

PATIENT

DRUGS (2)
  1. AVASTIN [Suspect]
     Indication: NON-SMALL CELL LUNG CANCER METASTATIC
  2. TARCEVA [Suspect]
     Indication: NON-SMALL CELL LUNG CANCER METASTATIC

REACTIONS (17)
  - DIARRHOEA [None]
  - BLOOD BILIRUBIN INCREASED [None]
  - DYSPNOEA [None]
  - RASH [None]
  - NAUSEA [None]
  - INFECTION [None]
  - BLOOD ALKALINE PHOSPHATASE INCREASED [None]
  - DECREASED APPETITE [None]
  - HAEMOPTYSIS [None]
  - GASTROINTESTINAL HAEMORRHAGE [None]
  - ACNE [None]
  - COUGH [None]
  - PROTEINURIA [None]
  - HYPERTENSION [None]
  - FATIGUE [None]
  - PRURITUS [None]
  - CARDIAC FAILURE [None]
